FAERS Safety Report 12275996 (Version 1)
Quarter: 2016Q2

REPORT INFORMATION
  Report Type: Report from Study
  Country: IN (occurrence: IN)
  Receive Date: 20160418
  Receipt Date: 20160418
  Transmission Date: 20160815
  Serious: Yes (Hospitalization)
  Sender: FDA-Public Use
  Company Number: IN-BAXTER-2016BAX019746

PATIENT
  Sex: Female

DRUGS (1)
  1. LOW CALCIUM PERITONEAL DIALYSIS SOLUTION WITH 1.5% DEXTROSE [Suspect]
     Active Substance: CALCIUM CHLORIDE\DEXTROSE\MAGNESIUM CHLORIDE\SODIUM CHLORIDE\SODIUM LACTATE
     Indication: PERITONEAL DIALYSIS
     Route: 033
     Dates: start: 20160229

REACTIONS (1)
  - Infection [Unknown]
